FAERS Safety Report 8856894 (Version 1)
Quarter: 2012Q4

REPORT INFORMATION
  Report Type: Spontaneous
  Country: US (occurrence: None)
  Receive Date: 20121023
  Receipt Date: 20121023
  Transmission Date: 20130627
  Serious: Yes (Other)
  Sender: FDA-Public Use
  Company Number: None

PATIENT
  Age: 53 Year
  Sex: Female
  Weight: 90.72 kg

DRUGS (3)
  1. OLANZAPINE [Suspect]
     Indication: ANXIETY DEPRESSION
     Dosage: 10 MG Bedtime
     Dates: start: 20120917
  2. OLANZAPINE [Suspect]
     Indication: PSYCHOTIC DISORDER
     Dosage: 10 MG Bedtime
     Dates: start: 20120917
  3. ZYPREXA [Concomitant]

REACTIONS (3)
  - Psychotic disorder [None]
  - Anger [None]
  - Product substitution issue [None]
